FAERS Safety Report 7788154-0 (Version None)
Quarter: 2011Q3

REPORT INFORMATION
  Report Type: 
  Country: None (occurrence: None)
  Receive Date: 20110930
  Receipt Date: 20110920
  Transmission Date: 20111222
  Serious: Yes (Other)
  Sender: FDA-Public Use
  Company Number: US-JNJFOC-20110608097

PATIENT
  Sex: Female
  Weight: 45 kg

DRUGS (19)
  1. REMICADE [Suspect]
     Route: 042
     Dates: start: 20100520
  2. BUDESONIDE [Concomitant]
  3. BENADRYL [Concomitant]
     Indication: PREMEDICATION
     Dates: start: 20110829
  4. OMEPRAZOLE [Concomitant]
  5. PROBIOTICS [Concomitant]
  6. TYLENOL-500 [Concomitant]
     Indication: PREMEDICATION
  7. SOLU-MEDROL [Concomitant]
  8. REMICADE [Suspect]
     Route: 042
     Dates: start: 20110531
  9. TYLENOL-500 [Concomitant]
     Dates: start: 20110829
  10. BENADRYL [Concomitant]
  11. MESALAMINE [Concomitant]
     Route: 048
  12. REMICADE [Suspect]
     Route: 042
     Dates: start: 20100730
  13. REMICADE [Suspect]
     Indication: INFLAMMATORY BOWEL DISEASE
     Route: 042
     Dates: start: 20110829
  14. REMICADE [Suspect]
     Route: 042
     Dates: start: 20100604
  15. APRISO [Concomitant]
  16. REMICADE [Suspect]
     Route: 042
     Dates: start: 20100701
  17. SOLU-MEDROL [Concomitant]
     Indication: PREMEDICATION
  18. SINGULAIR [Concomitant]
     Indication: ASTHMA
  19. PREDNISONE [Concomitant]
     Route: 048

REACTIONS (1)
  - ABSCESS LIMB [None]
